FAERS Safety Report 4622241-0 (Version None)
Quarter: 2005Q1

REPORT INFORMATION
  Report Type: 
  Country: None (occurrence: None)
  Receive Date: 20050323
  Receipt Date: 20050323
  Transmission Date: 20050727
  Serious: No
  Sender: FDA-Public Use
  Company Number: None

PATIENT
  Sex: Male
  Weight: 76.9 kg

DRUGS (4)
  1. CISPLATIN [Suspect]
     Dosage: 60 MG/M2 IV, DAY 1
     Route: 042
     Dates: start: 20040903
  2. MANNITOL [Suspect]
     Dosage: 12.5 GM , IV OVER 2 HOURS DAY 1
     Route: 042
  3. ETOPOSIDE [Suspect]
     Dosage: 120MG/M2 IV OVER 1HOUR; DAY 2 AND 3: 240MG/M2 P.O. AS A SINGLE DOSE PER DAY, TAKEN IN THE(SEE IMAGE)
     Route: 042
  4. RADIATION THERAPY [Suspect]
     Dosage: 1.8 GY PER FRACTION, 5 DAYS/WEEK; 16 FRACTIONS FOR A TOTAL OF 28.8 GY; DAILY

REACTIONS (6)
  - CLOSTRIDIUM COLITIS [None]
  - NEUTROPENIC COLITIS [None]
  - RENAL FAILURE ACUTE [None]
  - SEPSIS [None]
  - SMALL CELL LUNG CANCER STAGE UNSPECIFIED [None]
  - THROMBOCYTOPENIA [None]
